FAERS Safety Report 8878303 (Version 1)
Quarter: 2012Q4

REPORT INFORMATION
  Report Type: 
  Country: US (occurrence: US)
  Receive Date: 20121025
  Receipt Date: 20121025
  Transmission Date: 20130627
  Serious: No
  Sender: FDA-Public Use
  Company Number: US-AMGEN-USASP2012021783

PATIENT
  Age: 52 Year
  Sex: Female
  Weight: 63.49 kg

DRUGS (19)
  1. VITAMIN A /00056001/ [Concomitant]
  2. OMEGA 3                            /01334101/ [Concomitant]
  3. LEUCOVORIN CALCIUM                 /00566702/ [Concomitant]
  4. MAGNESIUM OXIDE [Concomitant]
     Dosage: 400 mg, UNK
  5. ENBREL [Suspect]
     Indication: PRODUCT USED FOR UNKNOWN INDICATION
     Dosage: 50 mg, qwk
     Route: 058
  6. MELOXICAM [Concomitant]
     Dosage: 15 mg, UNK
  7. METHOTREXATE [Concomitant]
     Dosage: 2.5 mg, UNK
  8. PROVENTIL                          /00139501/ [Concomitant]
     Dosage: 90 mug, UNK
  9. ALLEGRA [Concomitant]
     Dosage: 30 mg, UNK
  10. TRAZODONE [Concomitant]
     Dosage: 100 mg, UNK
  11. LORAZEPAM [Concomitant]
     Dosage: 1 mg, UNK
  12. FLUOXETINE [Concomitant]
     Dosage: 40 mg, UNK
  13. LEVOTHYROXIN [Concomitant]
     Dosage: 100 mug, UNK
  14. NEXIUM                             /01479302/ [Concomitant]
     Dosage: 40 mg, UNK
  15. STRESS FORMULA                     /02361601/ [Concomitant]
  16. VITAMIN D /00107901/ [Concomitant]
     Dosage: 2000 IU, UNK
  17. POTASSIUM GLUCONATE [Concomitant]
     Dosage: 2.5 mEq, UNK
  18. CALCIUM W/VITAMIN D                /00188401/ [Concomitant]
  19. FOLIC ACID [Concomitant]

REACTIONS (2)
  - Chest pain [Unknown]
  - Injection site erythema [Unknown]
